FAERS Safety Report 7679420-8 (Version None)
Quarter: 2011Q3

REPORT INFORMATION
  Report Type: 
  Country: None (occurrence: None)
  Receive Date: 20110805
  Receipt Date: 20110728
  Transmission Date: 20111222
  Serious: Yes (Other)
  Sender: FDA-Public Use
  Company Number: 2011SP035563

PATIENT
  Age: 16 Year
  Sex: Female

DRUGS (1)
  1. IMPLANON [Suspect]
     Indication: CONTRACEPTION
     Dosage: 1 DF; SBDE
     Route: 059
     Dates: start: 20110502

REACTIONS (9)
  - ASTHENIA [None]
  - TENDERNESS [None]
  - LEUKOCYTOCLASTIC VASCULITIS [None]
  - APPLICATION SITE HAEMATOMA [None]
  - RASH GENERALISED [None]
  - FINE MOTOR DELAY [None]
  - EAR PAIN [None]
  - VASCULITIS [None]
  - APPLICATION SITE PAIN [None]
